FAERS Safety Report 6633840-9 (Version None)
Quarter: 2010Q1

REPORT INFORMATION
  Report Type: 
  Country: None (occurrence: None)
  Receive Date: 20100315
  Receipt Date: 20100302
  Transmission Date: 20100710
  Serious: No
  Sender: FDA-Public Use
  Company Number: US-JNJFOC-20100301428

PATIENT
  Sex: Male
  Weight: 97.52 kg

DRUGS (5)
  1. FENTANYL-100 [Suspect]
     Indication: PAIN
     Route: 062
  2. FENTANYL-100 [Suspect]
     Route: 062
  3. FENTANYL-100 [Suspect]
     Route: 062
  4. PERCOCET [Concomitant]
     Indication: PAIN
     Dosage: FREQUENCY: 2 TO 4 PER DAY
     Route: 048
  5. LYRICA [Concomitant]
     Indication: NEURALGIA
     Route: 048

REACTIONS (2)
  - PRODUCT ADHESION ISSUE [None]
  - WRONG TECHNIQUE IN DRUG USAGE PROCESS [None]
